FAERS Safety Report 7545789-8 (Version None)
Quarter: 2011Q2

REPORT INFORMATION
  Report Type: 
  Country: None (occurrence: None)
  Receive Date: 20110524
  Receipt Date: 20110304
  Transmission Date: 20111010
  Serious: No
  Sender: FDA-Public Use
  Company Number: 028827

PATIENT
  Sex: Female

DRUGS (3)
  1. METHOTREXATE [Suspect]
     Dates: end: 20110115
  2. CIMZIA [Suspect]
     Indication: RHEUMATOID ARTHRITIS
     Dosage: (SUBCUTANEOUS) ; (SUBCUTANEOUS)
     Route: 058
     Dates: start: 20100901
  3. CIMZIA [Suspect]
     Indication: CROHN'S DISEASE
     Dosage: (SUBCUTANEOUS) ; (SUBCUTANEOUS)
     Route: 058
     Dates: start: 20100901

REACTIONS (4)
  - ARTHRALGIA [None]
  - FATIGUE [None]
  - NODULE [None]
  - MYALGIA [None]
